FAERS Safety Report 6868475-6 (Version None)
Quarter: 2010Q3

REPORT INFORMATION
  Report Type: 
  Country: None (occurrence: None)
  Receive Date: 20100722
  Receipt Date: 20080527
  Transmission Date: 20110219
  Serious: Yes (Other)
  Sender: FDA-Public Use
  Company Number: US-PFIZER INC-2008046701

PATIENT
  Sex: Female

DRUGS (1)
  1. CHANTIX [Suspect]
     Dates: start: 20080401, end: 20080527

REACTIONS (4)
  - ABNORMAL DREAMS [None]
  - INSOMNIA [None]
  - SLEEP DISORDER [None]
  - VISUAL IMPAIRMENT [None]
